FAERS Safety Report 5514522-3 (Version None)
Quarter: 2007Q4

REPORT INFORMATION
  Report Type: 
  Country: None (occurrence: None)
  Receive Date: 20071113
  Receipt Date: 20071030
  Transmission Date: 20080405
  Serious: Yes (Death, Hospitalization, Other)
  Sender: FDA-Public Use
  Company Number: GB-BRISTOL-MYERS SQUIBB COMPANY-13977418

PATIENT
  Age: 58 Year
  Sex: Female

DRUGS (4)
  1. CYCLOPHOSPHAMIDE [Suspect]
     Indication: CHEMOTHERAPY
     Route: 042
  2. FLUDARA [Suspect]
     Indication: CHEMOTHERAPY
     Route: 042
  3. NEUPOGEN [Concomitant]
  4. INTERFERON ALFA [Concomitant]

REACTIONS (12)
  - ANAEMIA [None]
  - DEMENTIA [None]
  - DEPRESSION [None]
  - DIARRHOEA [None]
  - FATIGUE [None]
  - LEUKOENCEPHALOPATHY [None]
  - LIVER FUNCTION TEST ABNORMAL [None]
  - LYMPHOPENIA [None]
  - NEUTROPENIA [None]
  - THROMBOCYTOPENIA [None]
  - UPPER MOTOR NEURONE LESION [None]
  - VISUAL DISTURBANCE [None]
